FAERS Safety Report 11773650 (Version 1)
Quarter: 2015Q4

REPORT INFORMATION
  Report Type: Not Available
  Country: KR (occurrence: KR)
  Receive Date: 20151124
  Receipt Date: 20151124
  Transmission Date: 20160304
  Serious: Yes (Hospitalization)
  Sender: FDA-Public Use
  Company Number: KR-CONCORDIA PHARMACEUTICALS INC.-CO-UX-KR-2015-048

PATIENT
  Age: 54 Year
  Sex: Male

DRUGS (3)
  1. ALFUZOSIN HYDROCHLORIDE. [Suspect]
     Active Substance: ALFUZOSIN HYDROCHLORIDE
     Indication: BENIGN PROSTATIC HYPERPLASIA
     Route: 048
     Dates: start: 2013
  2. ASPIRIN. [Suspect]
     Active Substance: ASPIRIN
     Indication: PRODUCT USED FOR UNKNOWN INDICATION
     Route: 065
     Dates: start: 2013
  3. TORSEMIDE. [Suspect]
     Active Substance: TORSEMIDE
     Indication: PRODUCT USED FOR UNKNOWN INDICATION
     Route: 065
     Dates: start: 2013

REACTIONS (5)
  - Condition aggravated [Recovering/Resolving]
  - Tachycardia [Recovering/Resolving]
  - Monoplegia [Unknown]
  - Dizziness [Recovering/Resolving]
  - Aortic stenosis [Recovering/Resolving]

NARRATIVE: CASE EVENT DATE: 201510
